FAERS Safety Report 4319841-4 (Version None)
Quarter: 2004Q1

REPORT INFORMATION
  Report Type: 
  Country: None (occurrence: None)
  Receive Date: 20040317
  Receipt Date: 20040308
  Transmission Date: 20041129
  Serious: Yes (Hospitalization, Other)
  Sender: FDA-Public Use
  Company Number: 163-20785-04030193 (0)

PATIENT
  Age: 82 Year
  Sex: Male

DRUGS (1)
  1. THALOMID [Suspect]
     Indication: NEOPLASM
     Dosage: 50 MG, ORAL
     Route: 048

REACTIONS (4)
  - COORDINATION ABNORMAL [None]
  - ERYTHEMA [None]
  - PYREXIA [None]
  - SKIN DISORDER [None]
